FAERS Safety Report 8185082-6 (Version None)
Quarter: 2012Q1

REPORT INFORMATION
  Report Type: 
  Country: None (occurrence: None)
  Receive Date: 20120213
  Receipt Date: 20111027
  Transmission Date: 20120608
  Serious: Yes (Death)
  Sender: FDA-Public Use
  Company Number: E2020-09906-SPO-US

PATIENT
  Age: 89 Year
  Sex: Female

DRUGS (5)
  1. NAMENDA [Concomitant]
  2. ACETYLCHOLINE (ACETYLCHOLINE) [Concomitant]
  3. ARICEPT [Suspect]
     Indication: DEMENTIA
     Dosage: UNKNOWN, UNKNOWN, ORAL
     Route: 048
     Dates: start: 20090101, end: 20100601
  4. FISH OIL (FISH OIL) [Concomitant]
  5. ACETYLCHOLINE (ACETYLCHOLINE) [Concomitant]

REACTIONS (5)
  - NAUSEA [None]
  - APHASIA [None]
  - HYPOKINESIA [None]
  - RESPIRATORY RATE INCREASED [None]
  - DEATH [None]
